FAERS Safety Report 4422208-1 (Version None)
Quarter: 2004Q3

REPORT INFORMATION
  Report Type: 
  Country: None (occurrence: None)
  Receive Date: 20040810
  Receipt Date: 20040204
  Transmission Date: 20050211
  Serious: Yes (Hospitalization, Other)
  Sender: FDA-Public Use
  Company Number: PHFR2004GB00916

PATIENT
  Age: 45 Year
  Sex: Male

DRUGS (5)
  1. CLOZARIL [Suspect]
     Indication: SCHIZOPHRENIA
     Dosage: 350MG/DAY
     Route: 048
     Dates: start: 19980506
  2. OMEPRAZOLE [Concomitant]
     Dosage: 20MG/DAY
     Route: 048
     Dates: start: 19980401
  3. HYOSCINE HBR HYT [Concomitant]
     Dosage: 300-600 UG/DAY
     Route: 048
     Dates: start: 20020709
  4. VALPROATE SODIUM [Concomitant]
     Dosage: 800MG/DAY
     Route: 048
     Dates: start: 20030109
  5. PAROXETINE HCL [Concomitant]
     Dosage: 30MG/DAY
     Route: 065
     Dates: start: 20030407

REACTIONS (9)
  - BODY TEMPERATURE INCREASED [None]
  - INFLUENZA LIKE ILLNESS [None]
  - LOWER RESPIRATORY TRACT INFECTION [None]
  - MASS [None]
  - NEUTROPHIL COUNT INCREASED [None]
  - PLATELET COUNT INCREASED [None]
  - PNEUMONIA [None]
  - RESPIRATORY TRACT INFECTION [None]
  - WHITE BLOOD CELL COUNT INCREASED [None]
